FAERS Safety Report 15205687 (Version 1)
Quarter: 2018Q3

REPORT INFORMATION
  Report Type: Spontaneous
  Country: GB (occurrence: GB)
  Receive Date: 20180727
  Receipt Date: 20180727
  Transmission Date: 20181010
  Serious: Yes (Other)
  Sender: FDA-Public Use
  Company Number: GB-TEVA-2018-GB-929955

PATIENT
  Age: 50 Year
  Sex: Female
  Weight: 68 kg

DRUGS (4)
  1. ZELLETA [Concomitant]
     Dosage: 1 DOSAGE FORMS DAILY;
     Route: 065
     Dates: start: 20170714
  2. OLSALAZINE SODIUM [Concomitant]
     Active Substance: OLSALAZINE SODIUM
     Dosage: 6 DOSAGE FORMS DAILY;
     Route: 065
     Dates: start: 20170714
  3. MESALAZINE [Concomitant]
     Active Substance: MESALAMINE
     Dosage: TWICE DAILY.
     Route: 065
     Dates: start: 20170714
  4. CARBAMAZEPINE. [Suspect]
     Active Substance: CARBAMAZEPINE
     Route: 065
     Dates: start: 20180620

REACTIONS (3)
  - Drug eruption [Recovering/Resolving]
  - Rash maculo-papular [Recovering/Resolving]
  - Erythema [Recovering/Resolving]

NARRATIVE: CASE EVENT DATE: 20180620
